FAERS Safety Report 8200792-X (Version None)
Quarter: 2012Q1

REPORT INFORMATION
  Report Type: 
  Country: None (occurrence: None)
  Receive Date: 20120307
  Receipt Date: 20120227
  Transmission Date: 20120608
  Serious: Yes (Other)
  Sender: FDA-Public Use
  Company Number: QR60299-01

PATIENT
  Sex: Female

DRUGS (3)
  1. UNKNOWN [Concomitant]
  2. WARFARIN SODIUM [Concomitant]
  3. GAMMAPLEX [Suspect]
     Indication: PRODUCT USED FOR UNKNOWN INDICATION
     Dosage: 125G IV
     Route: 042
     Dates: start: 20120226

REACTIONS (3)
  - PULMONARY EMBOLISM [None]
  - DRUG INTERACTION [None]
  - INTERNATIONAL NORMALISED RATIO DECREASED [None]
